FAERS Safety Report 7834599-X (Version None)
Quarter: 2011Q4

REPORT INFORMATION
  Report Type: 
  Country: None (occurrence: None)
  Receive Date: 20111024
  Receipt Date: 20111016
  Transmission Date: 20120403
  Serious: Yes (Death)
  Sender: FDA-Public Use
  Company Number: EG-SANOFI-AVENTIS-2011SA067796

PATIENT
  Age: 59 Year
  Sex: Male

DRUGS (2)
  1. NOVORAPID [Concomitant]
  2. LANTUS [Suspect]
     Indication: TYPE 2 DIABETES MELLITUS
     Dosage: DOSE:14 UNIT(S)
     Route: 058
     Dates: start: 20110214, end: 20110616

REACTIONS (1)
  - GASTROENTERITIS VIRAL [None]
